FAERS Safety Report 17356088 (Version 3)
Quarter: 2020Q1

REPORT INFORMATION
  Report Type: Spontaneous
  Country: US (occurrence: US)
  Receive Date: 20200131
  Receipt Date: 20200320
  Transmission Date: 20200409
  Serious: No
  Sender: FDA-Public Use
  Company Number: NVSC2020US025076

PATIENT
  Sex: Female

DRUGS (2)
  1. COSENTYX [Suspect]
     Active Substance: SECUKINUMAB
     Indication: PSORIASIS
     Dosage: 300 MG, QW
     Route: 058
     Dates: start: 20200122
  2. COSENTYX [Suspect]
     Active Substance: SECUKINUMAB
     Indication: PSORIATIC ARTHROPATHY

REACTIONS (13)
  - Malaise [Unknown]
  - Ear discomfort [Unknown]
  - Nasopharyngitis [Unknown]
  - Sneezing [Unknown]
  - Inflammation [Unknown]
  - Rhinorrhoea [Unknown]
  - Concomitant disease aggravated [Unknown]
  - Peripheral swelling [Unknown]
  - Oropharyngeal pain [Unknown]
  - Pain in extremity [Unknown]
  - Psoriasis [Unknown]
  - Skin fissures [Not Recovered/Not Resolved]
  - Injection site bruising [Recovering/Resolving]
